FAERS Safety Report 5058144-X (Version None)
Quarter: 2006Q3

REPORT INFORMATION
  Report Type: 
  Country: None (occurrence: None)
  Receive Date: 20060721
  Receipt Date: 20050525
  Transmission Date: 20061208
  Serious: Yes (Life-Threatening, Other)
  Sender: FDA-Public Use
  Company Number: JP-MERCK-0506USA04004

PATIENT
  Age: 16 Year
  Sex: Female
  Weight: 43 kg

DRUGS (17)
  1. DECADRON [Suspect]
     Indication: ACUTE LYMPHOCYTIC LEUKAEMIA
     Route: 048
     Dates: start: 20020722, end: 20020724
  2. DECADRON [Suspect]
     Route: 048
     Dates: start: 20020704, end: 20020721
  3. DECADRON [Suspect]
     Route: 048
     Dates: start: 20020725, end: 20020726
  4. DECADRON [Suspect]
     Route: 048
     Dates: start: 20020727, end: 20020728
  5. HYDROCORTONE [Suspect]
     Indication: ACUTE LYMPHOCYTIC LEUKAEMIA
     Route: 051
     Dates: start: 20020705, end: 20020705
  6. HYDROCORTONE [Suspect]
     Route: 051
     Dates: start: 20020708, end: 20020708
  7. HYDROCORTONE [Suspect]
     Route: 051
     Dates: start: 20020711, end: 20020711
  8. HYDROCORTONE [Suspect]
     Route: 051
     Dates: start: 20020715, end: 20020715
  9. FILDESIN [Suspect]
     Indication: ACUTE LYMPHOCYTIC LEUKAEMIA
     Route: 042
     Dates: start: 20020716, end: 20020716
  10. ENDOXAN [Suspect]
     Indication: ACUTE LYMPHOCYTIC LEUKAEMIA
     Route: 042
     Dates: start: 20020716, end: 20020716
  11. THERARUBICIN [Suspect]
     Indication: ACUTE LYMPHOCYTIC LEUKAEMIA
     Route: 042
     Dates: start: 20020717, end: 20020718
  12. LEUNASE [Suspect]
     Indication: ACUTE LYMPHOCYTIC LEUKAEMIA
     Route: 030
     Dates: start: 20020717, end: 20020721
  13. METHOTREXATE [Suspect]
     Indication: ACUTE LYMPHOCYTIC LEUKAEMIA
     Route: 051
     Dates: start: 20020705, end: 20020715
  14. CYTARABINE [Suspect]
     Indication: ACUTE LYMPHOCYTIC LEUKAEMIA
     Route: 051
     Dates: start: 20020705, end: 20020715
  15. KYTRIL [Concomitant]
     Indication: VOMITING
     Route: 042
     Dates: start: 20020716, end: 20020721
  16. PRIMPERAN TAB [Concomitant]
     Indication: VOMITING
     Route: 042
     Dates: start: 20020719, end: 20020721
  17. PEPCID [Concomitant]
     Indication: UPPER GASTROINTESTINAL HAEMORRHAGE
     Route: 042
     Dates: start: 20020719, end: 20020728

REACTIONS (6)
  - ACUTE LYMPHOCYTIC LEUKAEMIA [None]
  - ACUTE RESPIRATORY DISTRESS SYNDROME [None]
  - CANDIDA SEPSIS [None]
  - PNEUMONIA [None]
  - PYREXIA [None]
  - RENAL DISORDER [None]
